FAERS Safety Report 5600278-2 (Version None)
Quarter: 2007Q4

REPORT INFORMATION
  Report Type: 
  Country: None (occurrence: None)
  Receive Date: 20071227
  Receipt Date: 20070326
  Transmission Date: 20080405
  Serious: Yes (Other)
  Sender: FDA-Public Use
  Company Number: 2007S1000083

PATIENT
  Age: 4 Year
  Weight: 15 kg

DRUGS (1)
  1. ACITRETIN [Suspect]
     Indication: ICHTHYOSIS
     Dosage: 1.00 MG/KG;QD;PO : 0.83 MG/KG;QD;PO
     Route: 048

REACTIONS (2)
  - DRUG INEFFECTIVE [None]
  - HEARING IMPAIRED [None]
